FAERS Safety Report 9630258 (Version 4)
Quarter: 2014Q2

REPORT INFORMATION
  Report Type: Spontaneous
  Country: JP (occurrence: JP)
  Receive Date: 20131017
  Receipt Date: 20140527
  Transmission Date: 20141212
  Serious: Yes (Other)
  Sender: FDA-Public Use
  Company Number: JP-009507513-1310JPN005775

PATIENT
  Age: 64 Year
  Sex: Female

DRUGS (4)
  1. PEGINTRON [Suspect]
     Indication: CHRONIC HEPATITIS C
     Dosage: DAILY DOSE UNKNOWN,WEELY
     Route: 058
  2. REBETOL [Suspect]
     Indication: CHRONIC HEPATITIS C
     Dosage: DAILY DOSAGE UNKNOWN
     Route: 048
  3. PREDNISOLONE [Suspect]
     Indication: SKIN DISORDER
     Dosage: 20 MG/1DAY,DIVIDED DOSE FREQUENCY UNKNOWN
  4. TELAVIC [Suspect]
     Indication: CHRONIC HEPATITIS C
     Dosage: DAILY DOSAGE UNKNOWN
     Route: 048

REACTIONS (4)
  - Bone marrow failure [Unknown]
  - Muscle abscess [Unknown]
  - Tracheostomy [Unknown]
  - Skin disorder [Unknown]
